FAERS Safety Report 4545517-4 (Version None)
Quarter: 2005Q1

REPORT INFORMATION
  Report Type: 
  Country: None (occurrence: None)
  Receive Date: 20050103
  Receipt Date: 20041216
  Transmission Date: 20050727
  Serious: Yes (Death)
  Sender: FDA-Public Use
  Company Number: A03200404259

PATIENT
  Age: 70 Year
  Sex: Female

DRUGS (1)
  1. PLAVIX [Suspect]
     Indication: VASCULAR ENCEPHALOPATHY
     Dosage: ORAL
     Route: 048

REACTIONS (1)
  - HAEMORRHAGIC STROKE [None]
